FAERS Safety Report 18519838 (Version 1)
Quarter: 2020Q4

REPORT INFORMATION
  Report Type: Spontaneous
  Country: AU (occurrence: AU)
  Receive Date: 20201118
  Receipt Date: 20201118
  Transmission Date: 20210114
  Serious: Yes (Other)
  Sender: FDA-Public Use
  Company Number: AU-PURDUE-USA-2020-0177162

PATIENT
  Age: 76 Year
  Sex: Male

DRUGS (2)
  1. OXYCONTIN [Suspect]
     Active Substance: OXYCODONE HYDROCHLORIDE
     Indication: PRODUCT USED FOR UNKNOWN INDICATION
     Dosage: UNK
     Route: 065
  2. NIVOLUMAB [Suspect]
     Active Substance: NIVOLUMAB
     Indication: PRODUCT USED FOR UNKNOWN INDICATION
     Dosage: UNK
     Route: 065

REACTIONS (16)
  - Confusional state [Unknown]
  - Central nervous system lesion [Unknown]
  - Gait inability [Unknown]
  - Decreased appetite [Unknown]
  - Gait disturbance [Unknown]
  - Mobility decreased [Unknown]
  - Disorientation [Unknown]
  - Somnolence [Unknown]
  - Weight decreased [Unknown]
  - Paraesthesia [Unknown]
  - Tumour pain [Unknown]
  - Fatigue [Unknown]
  - Nausea [Unknown]
  - Gastrointestinal motility disorder [Unknown]
  - Fall [Unknown]
  - Asthenia [Unknown]
